FAERS Safety Report 9929473 (Version 3)
Quarter: 2014Q3

REPORT INFORMATION
  Report Type: Spontaneous
  Country: US (occurrence: US)
  Receive Date: 20140227
  Receipt Date: 20140707
  Transmission Date: 20150326
  Serious: Yes (Hospitalization)
  Sender: FDA-Public Use
  Company Number: US-GLAXOSMITHKLINE-A1062583A

PATIENT
  Age: 80 Year
  Sex: Male
  Weight: 105.9 kg

DRUGS (7)
  1. PRILOSEC [Concomitant]
     Active Substance: OMEPRAZOLE MAGNESIUM
  2. ZOFRAN [Concomitant]
     Active Substance: ONDANSETRON HYDROCHLORIDE
  3. ASPIRIN. [Concomitant]
     Active Substance: ASPIRIN
  4. LOVENOX [Concomitant]
     Active Substance: ENOXAPARIN SODIUM
  5. NAPROXEN. [Concomitant]
     Active Substance: NAPROXEN
  6. KAOPECTATE REGULAR STRENGTH CHERRY FLAVOR [Concomitant]
     Active Substance: BISMUTH SUBSALICYLATE
  7. VOTRIENT [Suspect]
     Active Substance: PAZOPANIB HYDROCHLORIDE
     Indication: RENAL CANCER
     Dosage: 800MG SEE DOSAGE TEXT
     Route: 048
     Dates: start: 20131203, end: 20140211

REACTIONS (6)
  - Deep vein thrombosis [Recovered/Resolved]
  - Drug ineffective [Unknown]
  - Hepatic enzyme increased [Recovered/Resolved]
  - Pulmonary embolism [Recovered/Resolved]
  - Renal cell carcinoma [Unknown]
  - Cholelithiasis [Unknown]

NARRATIVE: CASE EVENT DATE: 20140130
